FAERS Safety Report 11504362 (Version 1)
Quarter: 2015Q3

REPORT INFORMATION
  Report Type: Spontaneous
  Country: US (occurrence: US)
  Receive Date: 20150915
  Receipt Date: 20150915
  Transmission Date: 20151125
  Serious: No
  Sender: FDA-Public Use
  Company Number: US-AMGEN-USASP2015094425

PATIENT
  Age: 45 Year
  Sex: Male

DRUGS (1)
  1. ENBREL [Suspect]
     Active Substance: ETANERCEPT
     Indication: RHEUMATOID ARTHRITIS
     Dosage: 50 MG, UNK
     Route: 065
     Dates: start: 201505

REACTIONS (5)
  - Injection site haemorrhage [Unknown]
  - Device issue [Unknown]
  - Drug dose omission [Unknown]
  - Injection site swelling [Unknown]
  - Injection site nodule [Unknown]

NARRATIVE: CASE EVENT DATE: 2015
